FAERS Safety Report 8473822-8 (Version None)
Quarter: 2012Q2

REPORT INFORMATION
  Report Type: 
  Country: None (occurrence: None)
  Receive Date: 20120628
  Receipt Date: 20120109
  Transmission Date: 20120825
  Serious: Yes (Other)
  Sender: FDA-Public Use
  Company Number: US-MYLANLABS-2011S1025188

PATIENT
  Age: 27 Year
  Sex: Male

DRUGS (3)
  1. SEROQUEL XR [Concomitant]
     Route: 048
  2. CLOZAPINE [Suspect]
     Route: 048
     Dates: start: 20111101, end: 20111201
  3. DEPAKOTE [Concomitant]
     Route: 048

REACTIONS (2)
  - LEUKOPENIA [None]
  - GRANULOCYTOPENIA [None]
